FAERS Safety Report 23038306 (Version 1)
Quarter: 2023Q4

REPORT INFORMATION
  Report Type: Spontaneous
  Country: US (occurrence: None)
  Receive Date: 20231005
  Receipt Date: 20231005
  Transmission Date: 20240109
  Serious: Yes (Hospitalization)
  Sender: FDA-Public Use
  Company Number: None

PATIENT
  Sex: Female

DRUGS (1)
  1. FORTEO [Suspect]
     Active Substance: TERIPARATIDE
     Indication: Osteoporosis
     Dosage: OTHER STRENGTH : 250MCG/ML;?FREQUENCY : DAILY;?
     Route: 058
     Dates: start: 202306

REACTIONS (7)
  - Nausea [None]
  - Vomiting [None]
  - Constipation [None]
  - Blood calcium increased [None]
  - Decreased appetite [None]
  - Spinal compression fracture [None]
  - Gastrooesophageal reflux disease [None]
